FAERS Safety Report 14371063 (Version 2)
Quarter: 2018Q1

REPORT INFORMATION
  Report Type: Spontaneous
  Country: GB (occurrence: GB)
  Receive Date: 20180110
  Receipt Date: 20180221
  Transmission Date: 20180509
  Serious: Yes (Other)
  Sender: FDA-Public Use
  Company Number: GB-AUROBINDO-AUR-APL-2018-001200

PATIENT
  Sex: Male

DRUGS (7)
  1. ELIQUIS [Suspect]
     Active Substance: APIXABAN
     Indication: PRODUCT USED FOR UNKNOWN INDICATION
     Dosage: ()
     Route: 065
  2. APIXABAN [Suspect]
     Active Substance: APIXABAN
     Dosage: ()
     Route: 065
  3. AMIODARONE [Suspect]
     Active Substance: AMIODARONE
     Indication: PRODUCT USED FOR UNKNOWN INDICATION
     Dosage: UNK ()
     Route: 065
  4. APIXABAN [Suspect]
     Active Substance: APIXABAN
  5. APIXABAN [Suspect]
     Active Substance: APIXABAN
     Indication: PRODUCT USED FOR UNKNOWN INDICATION
     Dosage: ()
     Route: 065
  6. APIXABAN [Suspect]
     Active Substance: APIXABAN
     Dosage: ()
     Route: 065
  7. APIXABAN [Suspect]
     Active Substance: APIXABAN
     Dosage: ()
     Route: 065

REACTIONS (1)
  - Cerebrovascular accident [Unknown]
